FAERS Safety Report 16816461 (Version 1)
Quarter: 2019Q3

REPORT INFORMATION
  Report Type: Spontaneous
  Country: US (occurrence: US)
  Receive Date: 20190917
  Receipt Date: 20190917
  Transmission Date: 20191005
  Serious: No
  Sender: FDA-Public Use
  Company Number: US-RECKITT BENCKISER HEALTHCARE INT LIMITED-RB-84212-2019

PATIENT
  Age: 81 Year
  Sex: Female

DRUGS (2)
  1. MUCINEX [Suspect]
     Active Substance: GUAIFENESIN
     Indication: NASOPHARYNGITIS
     Dosage: 600 MILLIGRAM, QD
     Route: 065
     Dates: start: 20190412
  2. MUCINEX [Suspect]
     Active Substance: GUAIFENESIN
     Dosage: PATIENT TOOK ANOTHER TABLET 1-2 HOURS BEFORE REPORTING AND ACCIDENTALLY TOOK 2 MORE TABLETS FEW MINU
     Route: 065
     Dates: start: 20190413

REACTIONS (3)
  - Dysarthria [Recovered/Resolved]
  - Product use in unapproved indication [Recovered/Resolved]
  - Incorrect product administration duration [Recovered/Resolved]
